FAERS Safety Report 17356198 (Version 2)
Quarter: 2020Q1

REPORT INFORMATION
  Report Type: Report from Study
  Country: GB (occurrence: GB)
  Receive Date: 20200131
  Receipt Date: 20200220
  Transmission Date: 20200409
  Serious: Yes (Hospitalization)
  Sender: FDA-Public Use
  Company Number: GB-PFIZER INC-2020030585

PATIENT
  Weight: 40 kg

DRUGS (3)
  1. GEMTUZUMAB OZOGAMICIN [Suspect]
     Active Substance: GEMTUZUMAB OZOGAMICIN
     Indication: ACUTE MYELOID LEUKAEMIA
     Dosage: 3.6 MG, CYCLIC (OTHER)
     Route: 042
     Dates: start: 20191217, end: 20191223
  2. MITOXANTRONE HCL [Suspect]
     Active Substance: MITOXANTRONE HYDROCHLORIDE
     Indication: ACUTE MYELOID LEUKAEMIA
     Dosage: 12 MG/M2, DAILY
     Route: 042
     Dates: start: 20191214, end: 20191217
  3. AMIKACIN. [Concomitant]
     Active Substance: AMIKACIN
     Dosage: 300 MG, UNK
     Dates: end: 20200119

REACTIONS (3)
  - Pain [Recovered/Resolved]
  - Febrile neutropenia [Recovered/Resolved]
  - Rash [Recovered/Resolved]

NARRATIVE: CASE EVENT DATE: 20200113
